FAERS Safety Report 8849663 (Version 1)
Quarter: 2012Q4

REPORT INFORMATION
  Report Type: 
  Country: GB (occurrence: GB)
  Receive Date: 20121019
  Receipt Date: 20121019
  Transmission Date: 20130627
  Serious: Yes (Other)
  Sender: FDA-Public Use
  Company Number: GB-PFIZER INC-2012258619

PATIENT
  Age: 66 Year
  Sex: Male

DRUGS (1)
  1. SUNITINIB MALATE [Suspect]
     Indication: NEOPLASM MALIGNANT
     Dosage: UNK
     Route: 048
     Dates: start: 201005

REACTIONS (1)
  - Acquired haemophilia [Unknown]
